FAERS Safety Report 9309728 (Version 1)
Quarter: 2013Q2

REPORT INFORMATION
  Report Type: Spontaneous
  Country: US (occurrence: US)
  Receive Date: 20130525
  Receipt Date: 20130525
  Transmission Date: 20140414
  Serious: No
  Sender: FDA-Public Use
  Company Number: US-BRISTOL-MYERS SQUIBB COMPANY-18737460

PATIENT
  Age: 66 Year
  Sex: Female
  Weight: 78.46 kg

DRUGS (1)
  1. BYDUREON [Suspect]
     Indication: TYPE 2 DIABETES MELLITUS
     Route: 058
     Dates: start: 201209

REACTIONS (6)
  - Myalgia [Recovering/Resolving]
  - Rheumatoid arthritis [Recovering/Resolving]
  - Nausea [Recovered/Resolved]
  - Injection site nodule [Not Recovered/Not Resolved]
  - Injection site bruising [Not Recovered/Not Resolved]
  - Injection site pain [Unknown]
